FAERS Safety Report 15903951 (Version 1)
Quarter: 2019Q1

REPORT INFORMATION
  Report Type: Spontaneous
  Country: IT (occurrence: IT)
  Receive Date: 20190204
  Receipt Date: 20190204
  Transmission Date: 20190417
  Serious: Yes (Life-Threatening, Other)
  Sender: FDA-Public Use
  Company Number: IT-ACCORD-104250

PATIENT
  Age: 75 Year
  Sex: Male

DRUGS (3)
  1. DOCETAXEL. [Suspect]
     Active Substance: DOCETAXEL
     Indication: SARCOMATOID CARCINOMA OF THE LUNG
     Dosage: CONVENTIONAL DOSES, (3 Q 4 W)
     Dates: start: 2016, end: 2016
  2. PEMETREXED. [Suspect]
     Active Substance: PEMETREXED
     Indication: SARCOMATOID CARCINOMA OF THE LUNG
     Dosage: CONVENTIONAL DOSES
     Dates: start: 201601, end: 2016
  3. CARBOPLATIN. [Suspect]
     Active Substance: CARBOPLATIN
     Indication: SARCOMATOID CARCINOMA OF THE LUNG
     Dosage: CONVENTIONAL DOSES
     Dates: start: 201601, end: 2016

REACTIONS (4)
  - Drug ineffective [Unknown]
  - Vomiting [Unknown]
  - Nausea [Unknown]
  - Abdominal pain [Unknown]

NARRATIVE: CASE EVENT DATE: 201601
